FAERS Safety Report 6646199-8 (Version None)
Quarter: 2010Q1

REPORT INFORMATION
  Report Type: 
  Country: None (occurrence: None)
  Receive Date: 20100323
  Receipt Date: 20100218
  Transmission Date: 20100710
  Serious: Yes (Other)
  Sender: FDA-Public Use
  Company Number: US-ROCHE-682718

PATIENT
  Sex: Male
  Weight: 86.2 kg

DRUGS (6)
  1. CAPECITABINE [Suspect]
     Indication: NEUROENDOCRINE TUMOUR
     Dosage: OTHER INDICATION: METASTATIC CANCER; 1000 MG/M2; TWICE DAILY EVERY 1 TO 14 DAYS
     Route: 048
     Dates: start: 20091218, end: 20100127
  2. TEMODAR [Concomitant]
     Dosage: 150 MG/M2 DAILY EVERY 10 TO 14 DAYS.
     Route: 048
     Dates: start: 20091218, end: 20100127
  3. AVAPRO [Concomitant]
     Indication: HYPERTENSION
     Route: 048
     Dates: start: 19990224
  4. DYAZIDE [Concomitant]
     Indication: HYPERTENSION
     Dosage: DAILY DOSE: 37.5/25
     Route: 048
     Dates: start: 19991001
  5. CASODEX [Concomitant]
     Indication: PROSTATE CANCER
     Route: 048
     Dates: start: 20000101
  6. AVODART [Concomitant]
     Indication: PROSTATISM
     Route: 048
     Dates: start: 20091027

REACTIONS (4)
  - ARTERIAL THROMBOSIS [None]
  - DRUG INEFFECTIVE [None]
  - MALIGNANT NEOPLASM PROGRESSION [None]
  - SPLENIC INFARCTION [None]
